FAERS Safety Report 20448986 (Version 1)
Quarter: 2022Q1

REPORT INFORMATION
  Report Type: Spontaneous
  Country: US (occurrence: None)
  Receive Date: 20220208
  Receipt Date: 20220208
  Transmission Date: 20220424
  Serious: No
  Sender: FDA-Public Use
  Company Number: None

PATIENT
  Sex: Female

DRUGS (1)
  1. XELJANZ [Suspect]
     Active Substance: TOFACITINIB CITRATE
     Indication: Colitis ulcerative
     Dosage: 5MG  TWICE A DAY BY MOUTH?
     Route: 048
     Dates: start: 20210202

REACTIONS (3)
  - COVID-19 [None]
  - Product dose omission issue [None]
  - Condition aggravated [None]
